FAERS Safety Report 23182364 (Version 1)
Quarter: 2023Q4

REPORT INFORMATION
  Report Type: Spontaneous
  Country: US (occurrence: None)
  Receive Date: 20231114
  Receipt Date: 20231114
  Transmission Date: 20240110
  Serious: Yes (Disabling)
  Sender: FDA-Public Use
  Company Number: None

PATIENT
  Age: 47 Year
  Sex: Male
  Weight: 85.5 kg

DRUGS (3)
  1. BENADRYL ALLERGY PLUS CONGESTION [Suspect]
     Active Substance: DIPHENHYDRAMINE HYDROCHLORIDE\PHENYLEPHRINE HYDROCHLORIDE
     Indication: Hypersensitivity
     Dates: start: 20220130, end: 20220205
  2. men^s daily multivitamin [Concomitant]
  3. mineral supplement [Concomitant]

REACTIONS (14)
  - Product dose omission issue [None]
  - Photophobia [None]
  - Ocular hyperaemia [None]
  - Conjunctivitis [None]
  - Eye irritation [None]
  - Eye pain [None]
  - Eye pruritus [None]
  - Vision blurred [None]
  - Headache [None]
  - Eye swelling [None]
  - Uveitis [None]
  - Vitreous floaters [None]
  - Visual impairment [None]
  - Cataract [None]

NARRATIVE: CASE EVENT DATE: 20220205
